FAERS Safety Report 9076862 (Version 1)
Quarter: 2013Q1

REPORT INFORMATION
  Report Type: Spontaneous
  Country: US (occurrence: US)
  Receive Date: 20130129
  Receipt Date: 20130129
  Transmission Date: 20140127
  Serious: Yes (Other)
  Sender: FDA-Public Use
  Company Number: US-ABBOTT-12P-163-0944070-00

PATIENT
  Sex: Female
  Weight: 54.48 kg

DRUGS (5)
  1. HUMIRA 40 MG/ 0.8 ML PRE-FILLED SYRINGE [Suspect]
     Indication: PSORIASIS
     Route: 058
     Dates: start: 201202, end: 201202
  2. METHOTREXATE [Concomitant]
     Indication: PSORIASIS
     Dates: start: 201202, end: 201202
  3. METHOTREXATE [Concomitant]
     Indication: PSORIATIC ARTHROPATHY
  4. FOLIC ACID [Concomitant]
     Indication: VITAMIN SUPPLEMENTATION
  5. ADVIL [Concomitant]
     Indication: ARTHRALGIA

REACTIONS (3)
  - Psoriatic arthropathy [Recovered/Resolved]
  - Psoriatic arthropathy [Recovering/Resolving]
  - Gait disturbance [Recovering/Resolving]
